FAERS Safety Report 15675689 (Version 1)
Quarter: 2018Q4

REPORT INFORMATION
  Report Type: Spontaneous
  Country: US (occurrence: US)
  Receive Date: 20181129
  Receipt Date: 20181129
  Transmission Date: 20190205
  Serious: Yes (Other)
  Sender: FDA-Public Use
  Company Number: None

PATIENT
  Age: 42 Year
  Sex: Female
  Weight: 54 kg

DRUGS (1)
  1. OCREVUS [Suspect]
     Active Substance: OCRELIZUMAB
     Indication: MULTIPLE SCLEROSIS
     Dosage: ?          QUANTITY:1 EVERY 6 MONTHS;OTHER FREQUENCY:EVERY 6 MONTHS;?
     Route: 042
     Dates: start: 20180401, end: 20181001

REACTIONS (1)
  - Alopecia [None]

NARRATIVE: CASE EVENT DATE: 20181001
